FAERS Safety Report 5556729-5 (Version None)
Quarter: 2007Q4

REPORT INFORMATION
  Report Type: 
  Country: None (occurrence: None)
  Receive Date: 20071211
  Receipt Date: 20071211
  Transmission Date: 20080405
  Serious: Yes (Other)
  Sender: FDA-Public Use
  Company Number: 2007SP023770

PATIENT
  Age: 4 Year
  Sex: Female
  Weight: 23 kg

DRUGS (4)
  1. COPPERTONE KIDS LOTION SPF 30 (OCTINOXATE/OXYBENZONE/OCTYL SALICYLATE/ [Suspect]
     Indication: DRUG USE FOR UNKNOWN INDICATION
     Dosage: ONCE; TOP, TOP
     Route: 061
     Dates: start: 20071111, end: 20071111
  2. COPPERTONE KIDS LOTION SPF 30 (OCTINOXATE/OXYBENZONE/OCTYL SALICYLATE/ [Suspect]
     Indication: DRUG USE FOR UNKNOWN INDICATION
     Dosage: ONCE; TOP, TOP
     Route: 061
     Dates: start: 20061113, end: 20071113
  3. COPPERTONE KIDS LOTION SPF 30 (OCTINOXATE/OXYBENZONE/OCTYL SALICYLATE/ [Suspect]
  4. CELESTAMINE TAB [Concomitant]

REACTIONS (1)
  - ANGIOEDEMA [None]
